FAERS Safety Report 22651340 (Version 1)
Quarter: 2023Q2

REPORT INFORMATION
  Report Type: Spontaneous
  Country: JP (occurrence: JP)
  Receive Date: 20230628
  Receipt Date: 20230628
  Transmission Date: 20230722
  Serious: Yes (Hospitalization)
  Sender: FDA-Public Use
  Company Number: JP-Eisai-202303374_LEN-RCC_P_1

PATIENT

DRUGS (3)
  1. LENVIMA [Suspect]
     Active Substance: LENVATINIB
     Indication: Renal cell carcinoma
     Route: 048
  2. LENVIMA [Suspect]
     Active Substance: LENVATINIB
     Route: 048
  3. KEYTRUDA [Suspect]
     Active Substance: PEMBROLIZUMAB
     Indication: Renal cell carcinoma
     Route: 041

REACTIONS (1)
  - Oedema [Recovering/Resolving]
